FAERS Safety Report 15357788 (Version 1)
Quarter: 2018Q3

REPORT INFORMATION
  Report Type: Spontaneous
  Country: US (occurrence: US)
  Receive Date: 20180830
  Receipt Date: 20180830
  Transmission Date: 20181010
  Serious: Yes (Hospitalization)
  Sender: FDA-Public Use
  Company Number: None

PATIENT
  Age: 72 Year
  Sex: Male
  Weight: 102.2 kg

DRUGS (1)
  1. AZACITADINE (102816) [Suspect]
     Active Substance: AZACITIDINE
     Dates: end: 20180825

REACTIONS (2)
  - Hypoxia [None]
  - Arthritis infective [None]

NARRATIVE: CASE EVENT DATE: 20180826
